FAERS Safety Report 13342427 (Version 1)
Quarter: 2017Q1

REPORT INFORMATION
  Report Type: Other
  Country: US (occurrence: US)
  Receive Date: 20170316
  Receipt Date: 20170316
  Transmission Date: 20170428
  Serious: Yes (Hospitalization, Other)
  Sender: FDA-Public Use
  Company Number: US-ACORDA-ACO_135006_2017

PATIENT
  Age: 52 Year
  Sex: Female

DRUGS (1)
  1. AMPYRA [Suspect]
     Active Substance: DALFAMPRIDINE
     Indication: MULTIPLE SCLEROSIS
     Dosage: 10 MG, BID
     Route: 048
     Dates: start: 20100707

REACTIONS (3)
  - Laboratory test abnormal [Unknown]
  - Multiple organ dysfunction syndrome [Unknown]
  - Enterococcal sepsis [Unknown]

NARRATIVE: CASE EVENT DATE: 20170125
